FAERS Safety Report 15310589 (Version 1)
Quarter: 2018Q3

REPORT INFORMATION
  Report Type: Spontaneous
  Country: US (occurrence: US)
  Receive Date: 20180813
  Receipt Date: 20180813
  Transmission Date: 20181010
  Serious: No
  Sender: FDA-Public Use
  Company Number: None

PATIENT
  Age: 58 Year
  Sex: Female
  Weight: 61.2 kg

DRUGS (12)
  1. KLONOPIN 0.5MG [Concomitant]
  2. NIFEDICAL XL 60MG [Concomitant]
  3. VITAMIN B COMPLEX [Concomitant]
     Active Substance: CYANOCOBALAMIN\DEXPANTHENOL\NIACINAMIDE\PYRIDOXINE HYDROCHLORIDE\RIBOFLAVIN 5^-PHOSPHATE SODIUM\THIAMINE HYDROCHLORIDE\VITAMIN B COMPLEX
  4. MELOXICAM 15 [Concomitant]
  5. KLOR?CON M20 [Concomitant]
     Active Substance: POTASSIUM CHLORIDE
  6. PROZAC [Concomitant]
     Active Substance: FLUOXETINE HYDROCHLORIDE
  7. NEXIUM 20MG [Concomitant]
  8. VERZENIO [Suspect]
     Active Substance: ABEMACICLIB
     Indication: BREAST CANCER
     Route: 048
     Dates: start: 20180623
  9. GABAPENIN300MG [Concomitant]
  10. VENLAFAXINE [Concomitant]
     Active Substance: VENLAFAXINE HYDROCHLORIDE
  11. VITAMIN B12 [Concomitant]
     Active Substance: CYANOCOBALAMIN
  12. TRAZODONE 150MG [Concomitant]

REACTIONS (4)
  - Vomiting [None]
  - Diarrhoea [None]
  - Nausea [None]
  - Dry mouth [None]

NARRATIVE: CASE EVENT DATE: 20180813
